FAERS Safety Report 23895427 (Version 1)
Quarter: 2024Q2

REPORT INFORMATION
  Report Type: Spontaneous
  Country: ES (occurrence: ES)
  Receive Date: 20240524
  Receipt Date: 20240524
  Transmission Date: 20240715
  Serious: Yes (Other)
  Sender: FDA-Public Use
  Company Number: ES-SUN PHARMACEUTICAL INDUSTRIES LTD-2024RR-447837

PATIENT
  Age: 100 Year
  Sex: Male

DRUGS (21)
  1. PANTOPRAZOLE SODIUM [Suspect]
     Active Substance: PANTOPRAZOLE SODIUM
     Indication: Gastrooesophageal reflux prophylaxis
     Dosage: 20 MILLIGRAM, UNK
     Route: 065
  2. AMIODARONE [Suspect]
     Active Substance: AMIODARONE
     Indication: Arrhythmia
     Dosage: 200 MILLIGRAM(1/2/0/0)
     Route: 065
  3. POTASSIUM [Suspect]
     Active Substance: POTASSIUM
     Indication: Cardiac failure
     Dosage: 600 MILLIGRAM, UNK
     Route: 065
  4. GLYCOPYRRONIUM [Suspect]
     Active Substance: GLYCOPYRRONIUM
     Indication: Chronic obstructive pulmonary disease
     Dosage: 7.2 MICROGRAM(2/0/2)
     Route: 065
  5. APIXABAN [Suspect]
     Active Substance: APIXABAN
     Indication: Cerebrovascular accident
     Dosage: 2.5 MILLIGRAM, BID(1/0/1)
     Route: 065
  6. FORMOTEROL [Suspect]
     Active Substance: FORMOTEROL
     Indication: Chronic obstructive pulmonary disease
     Dosage: 2 DOSAGE FORM, BID
     Route: 065
  7. ALBUTEROL [Suspect]
     Active Substance: ALBUTEROL
     Indication: Chronic obstructive pulmonary disease
     Dosage: 2 DOSAGE FORM, BID
     Route: 065
  8. FUROSEMIDE [Suspect]
     Active Substance: FUROSEMIDE
     Indication: Cardiac failure
     Dosage: 40 MILLIGRAM(1)
     Route: 065
  9. BISOPROLOL [Suspect]
     Active Substance: BISOPROLOL\BISOPROLOL FUMARATE
     Indication: Cardiac failure
     Dosage: 2.5 MILLIGRAM (1/0/0)
     Route: 065
  10. EPLERENONE [Suspect]
     Active Substance: EPLERENONE
     Indication: Cardiac failure
     Dosage: 25 MILLIGRAM
     Route: 065
  11. TRAZODONE [Suspect]
     Active Substance: TRAZODONE HYDROCHLORIDE
     Indication: Insomnia
     Dosage: 0.5 DOSAGE FORM, QD
     Route: 065
  12. ZOLPIDEM [Suspect]
     Active Substance: ZOLPIDEM TARTRATE
     Indication: Insomnia
     Dosage: 10 MILLIGRAM (0/0/1/2)
     Route: 065
  13. IPRATROPIUM BROMIDE [Suspect]
     Active Substance: IPRATROPIUM BROMIDE\IPRATROPIUM BROMIDE ANHYDROUS
     Indication: Chronic obstructive pulmonary disease
     Dosage: 20 MICROGRAM(2/0/2)
     Route: 065
  14. BUDESONIDE [Suspect]
     Active Substance: BUDESONIDE
     Indication: Chronic obstructive pulmonary disease
     Dosage: 2 DOSAGE FORM, BID
  15. ACETAMINOPHEN [Concomitant]
     Active Substance: ACETAMINOPHEN
     Indication: Pain
     Dosage: 650 MILLIGRAM (0/0/1)
     Route: 065
  16. ACETAMINOPHEN [Concomitant]
     Active Substance: ACETAMINOPHEN
     Dosage: 1 GRAM(0/0/1)
     Route: 065
  17. ATORVASTATIN [Concomitant]
     Active Substance: ATORVASTATIN
     Indication: Cerebrovascular accident
     Dosage: 40 MILLIGRAM(0/0/1)
     Route: 065
  18. LATANOPROST [Concomitant]
     Active Substance: LATANOPROST
     Indication: Glaucoma
     Dosage: 0/0/1
     Route: 065
  19. NITROGLYCERIN [Concomitant]
     Active Substance: NITROGLYCERIN
     Indication: Angina pectoris
     Dosage: 10 MILLIGRAM
     Route: 065
  20. AMLODIPINE [Concomitant]
     Active Substance: AMLODIPINE BESYLATE
     Indication: Hypertension
     Dosage: 5 MILLIGRAM, QD
     Route: 065
  21. CHOLECALCIFEROL [Concomitant]
     Active Substance: CHOLECALCIFEROL
     Indication: Vitamin D deficiency
     Dosage: UNK
     Route: 065
     Dates: start: 20211210

REACTIONS (1)
  - Bradycardia [Recovered/Resolved]
